FAERS Safety Report 7944682-6 (Version None)
Quarter: 2011Q4

REPORT INFORMATION
  Report Type: 
  Country: None (occurrence: None)
  Receive Date: 20111129
  Receipt Date: 20111123
  Transmission Date: 20120403
  Serious: Yes (Other)
  Sender: FDA-Public Use
  Company Number: ES-JNJFOC-20111003604

PATIENT
  Age: 84 Year
  Sex: Male

DRUGS (6)
  1. CITALOPRAM [Concomitant]
     Indication: DEMENTIA ALZHEIMER'S TYPE
     Route: 065
  2. RISPERIDONE [Suspect]
     Indication: ABNORMAL BEHAVIOUR
     Route: 065
  3. LORAZEPAM [Concomitant]
     Indication: DEMENTIA ALZHEIMER'S TYPE
     Route: 065
  4. CITICOLINE [Concomitant]
     Indication: DEMENTIA ALZHEIMER'S TYPE
     Route: 065
  5. RISPERIDONE [Suspect]
     Indication: SPEECH DISORDER
     Route: 065
  6. CLOMETHIAZOLE [Concomitant]
     Indication: DEMENTIA ALZHEIMER'S TYPE

REACTIONS (8)
  - DEHYDRATION [None]
  - BLOOD CREATINE PHOSPHOKINASE INCREASED [None]
  - BLOOD LACTATE DEHYDROGENASE INCREASED [None]
  - PRODUCTIVE COUGH [None]
  - PYREXIA [None]
  - ANAEMIA [None]
  - MALAISE [None]
  - TRANSAMINASES INCREASED [None]
